FAERS Safety Report 5117756-5 (Version None)
Quarter: 2006Q3

REPORT INFORMATION
  Report Type: 
  Country: None (occurrence: None)
  Receive Date: 20060929
  Receipt Date: 20060921
  Transmission Date: 20061208
  Serious: Yes (Hospitalization)
  Sender: FDA-Public Use
  Company Number: GB-GLAXOSMITHKLINE-B0439178A

PATIENT
  Age: 44 Year
  Sex: Female

DRUGS (3)
  1. ALBUTEROL SPIROS [Suspect]
     Indication: ASTHMA
     Dosage: 200MG PER DAY
     Route: 048
  2. PREDNISOLONE [Concomitant]
     Indication: ASTHMA
     Dosage: 5MG TWICE PER DAY
  3. CORTICOSTEROIDS [Concomitant]
     Indication: ASTHMA
     Route: 048

REACTIONS (11)
  - AGITATION [None]
  - CLONUS [None]
  - FEELING ABNORMAL [None]
  - FEELING HOT [None]
  - HYPERHIDROSIS [None]
  - HYPERREFLEXIA [None]
  - IRON DEFICIENCY ANAEMIA [None]
  - OVERDOSE [None]
  - PUPILLARY REFLEX IMPAIRED [None]
  - SINUS TACHYCARDIA [None]
  - VASODILATATION [None]
